FAERS Safety Report 22264332 (Version 1)
Quarter: 2023Q2

REPORT INFORMATION
  Report Type: Spontaneous
  Country: None (occurrence: GB)
  Receive Date: 20230428
  Receipt Date: 20230428
  Transmission Date: 20230721
  Serious: Yes (Other)
  Sender: FDA-Public Use
  Company Number: GB-Ascend Therapeutics US, LLC-2140889

PATIENT
  Age: 51 Year
  Sex: Female
  Weight: 58 kg

DRUGS (5)
  1. ESTROGEL [Suspect]
     Active Substance: ESTRADIOL
     Indication: Menopause
     Route: 065
     Dates: start: 20230120
  2. ESTRADIOL [Suspect]
     Active Substance: ESTRADIOL
     Route: 065
     Dates: start: 20230120
  3. PRASTERONE [Concomitant]
     Active Substance: PRASTERONE
     Route: 065
  4. PROGESTERONE [Concomitant]
     Active Substance: PROGESTERONE
     Route: 065
  5. TEGRETOL RETARD(CARBAMAZEPINE) [Concomitant]
     Route: 065

REACTIONS (4)
  - Night sweats [Not Recovered/Not Resolved]
  - Panic attack [Not Recovered/Not Resolved]
  - Anxiety [Not Recovered/Not Resolved]
  - Insomnia [Not Recovered/Not Resolved]

NARRATIVE: CASE EVENT DATE: 20230127
